FAERS Safety Report 8623471-3 (Version None)
Quarter: 2012Q3

REPORT INFORMATION
  Report Type: 
  Country: None (occurrence: None)
  Receive Date: 20120827
  Receipt Date: 20120823
  Transmission Date: 20120928
  Serious: Yes (Death, Hospitalization)
  Sender: FDA-Public Use
  Company Number: VE-B.I. PHARMACEUTICALS,INC./RIDGEFIELD-2012-RA-00227RA

PATIENT
  Age: 79 Year
  Sex: Female
  Weight: 78 kg

DRUGS (5)
  1. ALTASE [Concomitant]
  2. PRADAXA [Suspect]
     Indication: ATRIAL FIBRILLATION
     Dosage: 220 MG
     Route: 048
     Dates: start: 20110801, end: 20120726
  3. LAXIS [Concomitant]
  4. DIGOXIN [Concomitant]
  5. LIPITOR [Concomitant]

REACTIONS (3)
  - HAEMARTHROSIS [None]
  - CARDIAC ARREST [None]
  - HAEMATOMA [None]
